FAERS Safety Report 4408381-X (Version None)
Quarter: 2004Q3

REPORT INFORMATION
  Report Type: 
  Country: None (occurrence: None)
  Receive Date: 20040722
  Receipt Date: 20040713
  Transmission Date: 20050211
  Serious: Yes (Hospitalization, Disabling)
  Sender: FDA-Public Use
  Company Number: US-JNJFOC-20040300771

PATIENT
  Age: 64 Year
  Sex: Female
  Weight: 120.2032 kg

DRUGS (22)
  1. LEVAQUIN [Suspect]
     Indication: CYSTITIS
     Dosage: 500 MG, 1 IN 1 DAY, ORAL
     Route: 048
     Dates: start: 20030601, end: 20030601
  2. LEVAQUIN [Suspect]
     Indication: SINUSITIS
     Dosage: 500 MG, 1 IN 1 DAY, ORAL
     Route: 048
     Dates: start: 20030601, end: 20030601
  3. LEVAQUIN [Suspect]
     Indication: CYSTITIS
     Dosage: 500 MG, 1 IN 1 DAY, ORAL
     Route: 048
     Dates: start: 20040201, end: 20040201
  4. LEVAQUIN [Suspect]
     Indication: SINUSITIS
     Dosage: 500 MG, 1 IN 1 DAY, ORAL
     Route: 048
     Dates: start: 20040201, end: 20040201
  5. PHENERGAN [Concomitant]
  6. XANAX [Concomitant]
  7. EFFEXOR XR [Concomitant]
  8. NEXIUM [Concomitant]
  9. TOPROL (METOPROLOL SUCCINATE) [Concomitant]
  10. ZANAFLEX [Concomitant]
  11. SYNTHROID [Concomitant]
  12. MOBIC [Concomitant]
  13. LORCET-HD [Concomitant]
  14. LANTAS (INSULIN GLARGINE) [Concomitant]
  15. HUMALOG [Concomitant]
  16. AVAPRO [Concomitant]
  17. IBUPROFEN [Concomitant]
  18. COMBIVENT [Concomitant]
  19. NEURONTIN [Concomitant]
  20. AMBIEN [Concomitant]
  21. ELAVIL [Concomitant]
  22. FIORICET [Concomitant]

REACTIONS (33)
  - BLADDER DISORDER [None]
  - BLOOD GLUCOSE ABNORMAL [None]
  - BLOOD PRESSURE ABNORMAL [None]
  - CARDIAC FAILURE CONGESTIVE [None]
  - CONDITION AGGRAVATED [None]
  - DEHYDRATION [None]
  - DRUG INEFFECTIVE [None]
  - DYSARTHRIA [None]
  - DYSGEUSIA [None]
  - DYSGRAPHIA [None]
  - DYSPNOEA [None]
  - FAECES DISCOLOURED [None]
  - FIBROMYALGIA [None]
  - GLOSSODYNIA [None]
  - ILEUS [None]
  - INTRAOCULAR PRESSURE INCREASED [None]
  - KERATOCONJUNCTIVITIS SICCA [None]
  - LOCALISED OSTEOARTHRITIS [None]
  - MENTAL IMPAIRMENT [None]
  - MITRAL VALVE INCOMPETENCE [None]
  - MOBILITY DECREASED [None]
  - OBSTRUCTION [None]
  - PUNCTATE KERATITIS [None]
  - READING DISORDER [None]
  - STOMATITIS [None]
  - SUICIDAL IDEATION [None]
  - SWOLLEN TONGUE [None]
  - TREATMENT NONCOMPLIANCE [None]
  - TRICUSPID VALVE INCOMPETENCE [None]
  - URINARY INCONTINENCE [None]
  - URINARY TRACT INFECTION [None]
  - VISION BLURRED [None]
  - VISUAL ACUITY REDUCED [None]
